FAERS Safety Report 10555222 (Version 1)
Quarter: 2014Q4

REPORT INFORMATION
  Report Type: Spontaneous
  Country: IT (occurrence: IT)
  Receive Date: 20141030
  Receipt Date: 20141030
  Transmission Date: 20150529
  Serious: Yes (Death, Life-Threatening)
  Sender: FDA-Public Use
  Company Number: IT-BAYER-2014-155574

PATIENT
  Age: 88 Year
  Sex: Female

DRUGS (6)
  1. LASIX [Concomitant]
     Active Substance: FUROSEMIDE
     Dosage: UNK, UNK
  2. TORECAN [Concomitant]
     Active Substance: THIETHYLPERAZINE MALATE
     Dosage: UNK, UNK
  3. HYDROCHLOROTHIAZIDE\VALSARTAN [Concomitant]
     Active Substance: HYDROCHLOROTHIAZIDE\VALSARTAN
     Dosage: UNK, UNK
  4. CARDIOASPIRIN [Suspect]
     Active Substance: ASPIRIN
     Indication: ACUTE MYOCARDIAL INFARCTION
     Dosage: 100 MG, QD
     Route: 048
     Dates: start: 20100101, end: 20141010
  5. MONOKET [Concomitant]
     Active Substance: ISOSORBIDE MONONITRATE
     Dosage: UNK, UNK
  6. DILATREND [Concomitant]
     Active Substance: CARVEDILOL
     Dosage: UNK, UNK

REACTIONS (1)
  - Subdural haemorrhage [Fatal]

NARRATIVE: CASE EVENT DATE: 20141018
